FAERS Safety Report 4548903-1 (Version None)
Quarter: 2004Q4

REPORT INFORMATION
  Report Type: 
  Country: None (occurrence: None)
  Receive Date: 20041227
  Receipt Date: 20041124
  Transmission Date: 20050328
  Serious: No
  Sender: FDA-Public Use
  Company Number: 04P-163-0281344-00

PATIENT
  Age: 55 Year
  Sex: Female
  Weight: 61.6892 kg

DRUGS (8)
  1. HUMIRA [Suspect]
     Indication: RHEUMATOID ARTHRITIS
     Dosage: 40 MG, 1 IN 2 WK, SUBCUTANEOUS
     Route: 058
     Dates: start: 20041008
  2. METHOTREXATE SODIUM [Concomitant]
  3. PREDNISONE [Concomitant]
  4. BUPROPION HYDROCHLORIDE [Concomitant]
  5. OXYBUTYNIN [Concomitant]
  6. CELECOXIB [Concomitant]
  7. CALCIUM WITH VITAMIN D [Concomitant]
  8. FOLIC ACID [Concomitant]

REACTIONS (5)
  - FATIGUE [None]
  - HEADACHE [None]
  - HOT FLUSH [None]
  - NECK PAIN [None]
  - POLLAKIURIA [None]
